FAERS Safety Report 6510196-3 (Version None)
Quarter: 2009Q4

REPORT INFORMATION
  Report Type: 
  Country: None (occurrence: None)
  Receive Date: 20091217
  Receipt Date: 20091211
  Transmission Date: 20100525
  Serious: Yes (Hospitalization, Other)
  Sender: FDA-Public Use
  Company Number: ADR26192009

PATIENT
  Age: 62 Year
  Sex: Male

DRUGS (2)
  1. ALENDRON BETA EINMAL WOCHENTLICH 70 MG TABLETTEN [Suspect]
     Indication: OSTEOPOROSIS
     Dosage: 70 MG, 1 IN 1 WK, ORAL
     Route: 048
     Dates: start: 20080601, end: 20090701
  2. TAMSULOSIN BETA 0,4 MG [Concomitant]

REACTIONS (4)
  - ERYTHEMA [None]
  - HYPERAESTHESIA [None]
  - NON-HODGKIN'S LYMPHOMA [None]
  - SWELLING [None]
